FAERS Safety Report 12256630 (Version 1)
Quarter: 2016Q2

REPORT INFORMATION
  Report Type: Spontaneous
  Country: None (occurrence: None)
  Receive Date: 20160411
  Receipt Date: 20160411
  Transmission Date: 20160815
  Serious: Yes (Life-Threatening, Hospitalization)
  Sender: FDA-Public Use
  Company Number: None

PATIENT
  Age: 82 Year
  Sex: Male
  Weight: 84.82 kg

DRUGS (2)
  1. XARELTO [Suspect]
     Active Substance: RIVAROXABAN
     Indication: ATRIAL FIBRILLATION
  2. ELIQUIS [Suspect]
     Active Substance: APIXABAN
     Indication: ATRIAL FIBRILLATION

REACTIONS (12)
  - Asthenia [None]
  - Hypotension [None]
  - Gait disturbance [None]
  - Blood count abnormal [None]
  - Cardiac failure congestive [None]
  - Gastrointestinal haemorrhage [None]
  - Haemoglobin decreased [None]
  - Internal haemorrhage [None]
  - Haemorrhoids [None]
  - Impaired driving ability [None]
  - Red blood cell count decreased [None]
  - Platelet count decreased [None]

NARRATIVE: CASE EVENT DATE: 20150911
